FAERS Safety Report 8200235-6 (Version None)
Quarter: 2012Q1

REPORT INFORMATION
  Report Type: 
  Country: None (occurrence: None)
  Receive Date: 20120312
  Receipt Date: 20120309
  Transmission Date: 20120608
  Serious: Yes (Other)
  Sender: FDA-Public Use
  Company Number: US-PFIZER INC-2012063589

PATIENT
  Sex: Male
  Weight: 106.6 kg

DRUGS (14)
  1. KLOR-CON [Concomitant]
     Dosage: 40 MEQ
  2. AVODART [Concomitant]
     Indication: PROSTATOMEGALY
     Dosage: 0.5 MG, 1X/DAY
  3. LASIX [Concomitant]
     Dosage: 40 MG, 1X/DAY
  4. MULTI-VITAMINS [Concomitant]
     Dosage: UNK, 1X/DAY
  5. VITAMIN D [Concomitant]
     Dosage: 1000 IU, 1X/DAY
  6. BYSTOLIC [Concomitant]
     Dosage: 5 MG, 2X/DAY
  7. IMDUR [Concomitant]
     Dosage: 30 MG, 2X/DAY
  8. LIPITOR [Suspect]
     Indication: BLOOD CHOLESTEROL INCREASED
     Dosage: 20 MG, 1X/DAY
     Route: 048
  9. HYDRALAZINE [Concomitant]
     Dosage: 25 MG, 3X/DAY
  10. DIOVAN HCT [Concomitant]
     Dosage: UNK
  11. COENZYME Q10 [Concomitant]
     Dosage: 60 MG, 1X/DAY
  12. NEXIUM [Concomitant]
     Dosage: 40 MG, 1X/DAY
  13. FLOMAX [Concomitant]
     Dosage: 0.4 MG, 1X/DAY
  14. COUMADIN [Concomitant]
     Dosage: 5 MG, 1X/DAY

REACTIONS (2)
  - MACULAR DEGENERATION [None]
  - CATARACT [None]
